FAERS Safety Report 25967840 (Version 1)
Quarter: 2025Q4

REPORT INFORMATION
  Report Type: Spontaneous
  Country: CN (occurrence: CN)
  Receive Date: 20251028
  Receipt Date: 20251028
  Transmission Date: 20260117
  Serious: Yes (Hospitalization)
  Sender: ABBVIE
  Company Number: CN-ABBVIE-6516236

PATIENT
  Age: 62 Year
  Sex: Male
  Weight: 55 kg

DRUGS (3)
  1. VENETOCLAX [Suspect]
     Active Substance: VENETOCLAX
     Indication: Chemotherapy
     Route: 048
     Dates: start: 20250925, end: 20250930
  2. SODIUM CHLORIDE [Concomitant]
     Active Substance: SODIUM CHLORIDE
     Indication: Vehicle solution use
     Route: 058
     Dates: start: 20250924, end: 20250930
  3. AZACITIDINE [Suspect]
     Active Substance: AZACITIDINE
     Indication: Chemotherapy
     Route: 058
     Dates: start: 20250924, end: 20250930

REACTIONS (6)
  - Myelosuppression [Recovering/Resolving]
  - Pyrexia [Unknown]
  - Platelet count decreased [Recovering/Resolving]
  - Oropharyngeal pain [Unknown]
  - Nasal congestion [Unknown]
  - Rhinorrhoea [Unknown]

NARRATIVE: CASE EVENT DATE: 20251009
